FAERS Safety Report 18236404 (Version 5)
Quarter: 2021Q1

REPORT INFORMATION
  Report Type: Spontaneous
  Country: IT (occurrence: IT)
  Receive Date: 20200907
  Receipt Date: 20210207
  Transmission Date: 20210419
  Serious: Yes (Other)
  Sender: FDA-Public Use
  Company Number: IT-AUROBINDO-AUR-APL-2020-046469

PATIENT
  Age: 48 Year
  Sex: Male

DRUGS (3)
  1. SIMVASTATIN. [Suspect]
     Active Substance: SIMVASTATIN
     Indication: TYPE IIB HYPERLIPIDAEMIA
     Dosage: 10 MILLIGRAM, DAILY
     Route: 065
  2. PRAVASTATIN TABLET [Suspect]
     Active Substance: PRAVASTATIN
     Indication: TYPE IIB HYPERLIPIDAEMIA
     Dosage: 20 MILLIGRAM, DAILY
     Route: 065
  3. PRAVASTATIN TABLET [Suspect]
     Active Substance: PRAVASTATIN
     Indication: TYPE IIA HYPERLIPIDAEMIA

REACTIONS (4)
  - Myalgia [Recovered/Resolved]
  - Myositis [Unknown]
  - Fall [Unknown]
  - Drug intolerance [Unknown]
